FAERS Safety Report 16204122 (Version 1)
Quarter: 2019Q2

REPORT INFORMATION
  Report Type: Spontaneous
  Country: CH (occurrence: CH)
  Receive Date: 20190416
  Receipt Date: 20190416
  Transmission Date: 20190711
  Serious: Yes (Hospitalization, Other)
  Sender: FDA-Public Use
  Company Number: CH-PFIZER INC-2019156978

PATIENT
  Age: 42 Year
  Sex: Male

DRUGS (8)
  1. XANAX [Suspect]
     Active Substance: ALPRAZOLAM
     Indication: SUBSTANCE DEPENDENCE
     Dosage: 2 MG, 0-1-0-2, SINCE UNKNOWN DATE UNTIL FURTHER NOTICE
  2. METHADON STREULI [Suspect]
     Active Substance: METHADONE HYDROCHLORIDE
     Indication: SUBSTANCE DEPENDENCE
     Dosage: 200 MG 2X/DAY SINCE JANUARY UNTIL FURTHER NOTICE
     Route: 048
     Dates: start: 201801
  3. VALIUM [Suspect]
     Active Substance: DIAZEPAM
     Indication: SUBSTANCE DEPENDENCE
     Dosage: 10 MG, 4X/DAY (1-1-1-1) SINCE UNKNOWN DATE UNTIL FURTHER NOTICE
     Route: 048
  4. XANAX [Suspect]
     Active Substance: ALPRAZOLAM
     Indication: SUBSTANCE DEPENDENCE
     Dosage: 2 MG, 0-1-1-2, SINCE UNKNOWN DATE UNTIL FURTHER NOTICE
     Route: 048
  5. RITALIN [Concomitant]
     Active Substance: METHYLPHENIDATE HYDROCHLORIDE
     Dosage: 20 MG, 3X/DAY (1-1-1-0)
     Route: 048
  6. MEFENACID [Concomitant]
     Active Substance: MEFENAMIC ACID
     Dosage: 500 MG IN RESERVE MAXIMUM 2X500 MG IN 24 HOURS
     Route: 048
  7. SERESTA [Suspect]
     Active Substance: OXAZEPAM
     Indication: SUBSTANCE DEPENDENCE
     Dosage: 15 MG, 3X/DAY (1-1-0-1) SINCE UNKNOWN DATE UNTIL FURTHER NOTICE
     Route: 048
  8. DUPHALAC [Concomitant]
     Active Substance: LACTULOSE
     Dosage: 3 ML, 2X/DAY, ON HOSPITAL ADMISSION ON 28JAN2019, NO MORE PRECISE
     Route: 048

REACTIONS (5)
  - Dyspnoea [Not Recovered/Not Resolved]
  - Performance status decreased [Not Recovered/Not Resolved]
  - Overdose [Unknown]
  - Weight increased [Not Recovered/Not Resolved]
  - Oedema [Not Recovered/Not Resolved]

NARRATIVE: CASE EVENT DATE: 201809
